FAERS Safety Report 7580399-8 (Version None)
Quarter: 2011Q2

REPORT INFORMATION
  Report Type: 
  Country: None (occurrence: None)
  Receive Date: 20110629
  Receipt Date: 20110607
  Transmission Date: 20111010
  Serious: Yes (Hospitalization)
  Sender: FDA-Public Use
  Company Number: US-ROCHE-785797

PATIENT
  Sex: Male

DRUGS (5)
  1. BEVACIZUMAB [Suspect]
     Dosage: OVER 30-90 MINS EVERY OTHER WEEK ON DAYS 1, 15, 29 DURING RADIOTHERAPY
     Route: 042
     Dates: start: 20101115
  2. OXALIPLATIN [Suspect]
     Dosage: OVER 2 HOURS  EVERY WEEK ON DAYS 1, 8, 15, 22, 29 DURING RADIOTHERAPY
     Route: 042
     Dates: start: 20101115
  3. CAPECITABINE [Suspect]
     Dosage: EVERY 12 HOURS 5 DAYS/WEEK STARTING ON DAY -1 TO RADIOTHERAPY
     Route: 048
     Dates: start: 20101115
  4. LEUCOVORIN CALCIUM [Suspect]
     Dosage: OVER 2 HOURS ON DAY 1 X 12 CYCLES, POST-OPERATIVE CHEMOTHERAPY
     Route: 042
     Dates: start: 20101115
  5. FLUOROURACIL [Suspect]
     Dosage: ROUTE: INTRAVENOUS PUSH; ON DAY 1 X 12 CYCLES; POST SURGERY CHEMOTHERAPY
     Route: 042
     Dates: start: 20101115

REACTIONS (1)
  - CONVULSION [None]
